FAERS Safety Report 17537756 (Version 1)
Quarter: 2020Q1

REPORT INFORMATION
  Report Type: Spontaneous
  Country: FR (occurrence: FR)
  Receive Date: 20200313
  Receipt Date: 20200313
  Transmission Date: 20200409
  Serious: Yes (Other)
  Sender: FDA-Public Use
  Company Number: FR-PFIZER INC-2020103203

PATIENT
  Age: 47 Year
  Sex: Female
  Weight: 48 kg

DRUGS (11)
  1. ALOXI [Suspect]
     Active Substance: PALONOSETRON HYDROCHLORIDE
     Indication: PREMEDICATION
     Dosage: UNK
     Route: 048
     Dates: start: 20191107, end: 20200103
  2. LEELOO [Concomitant]
     Active Substance: ETHINYL ESTRADIOL\LEVONORGESTREL
     Dosage: UNK
  3. INEXIUM [ESOMEPRAZOLE MAGNESIUM] [Concomitant]
     Active Substance: ESOMEPRAZOLE MAGNESIUM
     Dosage: UNK
  4. DOLIPRANE [Concomitant]
     Active Substance: ACETAMINOPHEN
     Dosage: UNK
  5. EMEND [Suspect]
     Active Substance: APREPITANT
     Indication: PREMEDICATION
     Dosage: UNK
     Route: 048
     Dates: start: 20191107, end: 20200103
  6. METHYLPREDNISOLONE MYLAN [METHYLPREDNISOLONE HEMISUCCINATE] [Suspect]
     Active Substance: METHYLPREDNISOLONE HEMISUCCINATE
     Dosage: 60 MG, CYCLIC
     Route: 042
     Dates: start: 20191107, end: 20200103
  7. GEMCITABINE HYDROCHLORIDE. [Suspect]
     Active Substance: GEMCITABINE HYDROCHLORIDE
     Indication: CHOLANGIOCARCINOMA
     Dosage: 1560 MG, CYCLIC (INTRA ARTERIAL HEPATIC)
     Route: 013
     Dates: start: 20191107, end: 20200103
  8. OXALIPLATIN. [Suspect]
     Active Substance: OXALIPLATIN
     Indication: CHOLANGIOCARCINOMA
     Dosage: 155 MG, CYCLIC (INTRA ARTERIAL HEPATIC)
     Route: 013
     Dates: start: 20191107, end: 20200103
  9. MORPHINE [Suspect]
     Active Substance: MORPHINE
     Indication: PREMEDICATION
     Dosage: UNK
     Route: 058
     Dates: start: 20191107, end: 20200103
  10. KARDEGIC [Concomitant]
     Active Substance: ASPIRIN DL-LYSINE
     Dosage: UNK
  11. TRAMADOL. [Concomitant]
     Active Substance: TRAMADOL
     Dosage: UNK

REACTIONS (4)
  - Cholestasis [Recovering/Resolving]
  - Product use in unapproved indication [Unknown]
  - Off label use [Unknown]
  - Product use issue [Unknown]

NARRATIVE: CASE EVENT DATE: 20191107
